FAERS Safety Report 9617513 (Version 2)
Quarter: 2013Q4

REPORT INFORMATION
  Report Type: Spontaneous
  Country: JP (occurrence: JP)
  Receive Date: 20131011
  Receipt Date: 20131011
  Transmission Date: 20140711
  Serious: Yes (Other)
  Sender: FDA-Public Use
  Company Number: JP-GLAXOSMITHKLINE-B0312158A

PATIENT
  Age: 71 Year
  Sex: Male
  Weight: 58 kg

DRUGS (10)
  1. VALTREX [Suspect]
     Indication: HERPES ZOSTER
     Dosage: 1000MG PER DAY
     Route: 048
     Dates: start: 20030909, end: 20030910
  2. LASIX [Concomitant]
     Indication: RENAL FAILURE CHRONIC
     Dosage: 40MG PER DAY
     Route: 048
     Dates: start: 200209
  3. BAYASPIRIN [Concomitant]
     Indication: THROMBOSIS PROPHYLAXIS
     Dosage: 100MG PER DAY
     Route: 048
     Dates: start: 200209
  4. UNKNOWN DRUG [Concomitant]
     Indication: HYPOCALCAEMIA
     Dosage: .5MCG PER DAY
     Route: 048
     Dates: start: 200209
  5. ADALAT-CR [Concomitant]
     Indication: HYPERTENSION
     Dosage: 20MG PER DAY
     Route: 048
     Dates: start: 200209
  6. ZYLORIC [Concomitant]
     Indication: HYPERURICAEMIA
     Dosage: 100MG PER DAY
     Route: 048
     Dates: start: 200209
  7. APLACE [Concomitant]
     Indication: GASTRITIS
     Dosage: 100MG PER DAY
     Route: 048
     Dates: start: 200209
  8. MYSLEE [Concomitant]
     Indication: INSOMNIA
     Dosage: 10MG PER DAY
     Route: 048
     Dates: start: 200209
  9. ARASENA-A [Concomitant]
     Indication: HERPES ZOSTER
     Route: 061
     Dates: start: 20030909, end: 20030911
  10. PENFILL 30R [Concomitant]
     Indication: DIABETES MELLITUS
     Dosage: 4IU PER DAY
     Route: 058

REACTIONS (4)
  - Hallucination, visual [Recovered/Resolved]
  - Delirium [Recovered/Resolved]
  - Logorrhoea [Recovered/Resolved]
  - Agitation [Recovered/Resolved]
